FAERS Safety Report 8800575 (Version 2)
Quarter: 2015Q1

REPORT INFORMATION
  Report Type: Report from Study
  Country: US (occurrence: US)
  Receive Date: 20120921
  Receipt Date: 20150303
  Transmission Date: 20150721
  Serious: Yes (Death)
  Sender: FDA-Public Use
  Company Number: US-ROCHE-1103564

PATIENT
  Sex: Female

DRUGS (7)
  1. TAGAMET [Concomitant]
     Active Substance: CIMETIDINE
     Route: 042
  2. DEXAMETHASONE. [Concomitant]
     Active Substance: DEXAMETHASONE
     Route: 042
  3. ABRAXANE [Concomitant]
     Active Substance: PACLITAXEL
     Route: 042
  4. BENADRYL [Concomitant]
     Active Substance: DIPHENHYDRAMINE HYDROCHLORIDE
     Route: 042
  5. AVASTIN [Suspect]
     Active Substance: BEVACIZUMAB
     Indication: PANCREATIC CARCINOMA
     Dosage: Q 0 WEEKS
     Route: 042
     Dates: start: 20090115
  6. 5-FLUOROURACIL [Concomitant]
     Active Substance: FLUOROURACIL
  7. ALOXI [Concomitant]
     Active Substance: PALONOSETRON HYDROCHLORIDE
     Route: 042

REACTIONS (2)
  - Death [Fatal]
  - Off label use [Unknown]
